FAERS Safety Report 19087902 (Version 1)
Quarter: 2021Q2

REPORT INFORMATION
  Report Type: Spontaneous
  Country: GB (occurrence: GB)
  Receive Date: 20210402
  Receipt Date: 20210402
  Transmission Date: 20210717
  Serious: Yes (Other)
  Sender: FDA-Public Use
  Company Number: GB-MYLANLABS-2021M1019646

PATIENT
  Age: 18 Year
  Sex: Male
  Weight: 65 kg

DRUGS (2)
  1. ESCITALOPRAM [Suspect]
     Active Substance: ESCITALOPRAM OXALATE
     Indication: ANXIETY DISORDER
     Dosage: 10 MILLIGRAM
     Route: 048
     Dates: start: 20210309, end: 20210309
  2. ESCITALOPRAM [Suspect]
     Active Substance: ESCITALOPRAM OXALATE
     Indication: DEPRESSION

REACTIONS (3)
  - Insomnia [Unknown]
  - Hallucination [Recovered/Resolved with Sequelae]
  - Tachyphrenia [Unknown]

NARRATIVE: CASE EVENT DATE: 20210309
